FAERS Safety Report 16122986 (Version 2)
Quarter: 2019Q2

REPORT INFORMATION
  Report Type: Report from Study
  Country: None (occurrence: AU)
  Receive Date: 20190327
  Receipt Date: 20190411
  Transmission Date: 20190711
  Serious: Yes (Other)
  Sender: FDA-Public Use
  Company Number: AU-ABBVIE-19S-008-2716342-00

PATIENT
  Sex: Male

DRUGS (1)
  1. LUCRIN DEPOT [Suspect]
     Active Substance: LEUPROLIDE ACETATE
     Indication: PROSTATE CANCER
     Route: 030
     Dates: start: 20190207

REACTIONS (4)
  - Palpitations [Unknown]
  - Dizziness exertional [Unknown]
  - Osteoarthritis [Unknown]
  - Nausea [Unknown]

NARRATIVE: CASE EVENT DATE: 2019
